FAERS Safety Report 22396930 (Version 1)
Quarter: 2023Q2

REPORT INFORMATION
  Report Type: Spontaneous
  Country: US (occurrence: None)
  Receive Date: 20230602
  Receipt Date: 20230602
  Transmission Date: 20230722
  Serious: Yes (Other)
  Sender: FDA-Public Use
  Company Number: 2023A122283

PATIENT
  Sex: Female

DRUGS (2)
  1. CALQUENCE [Suspect]
     Active Substance: ACALABRUTINIB
     Route: 048
  2. CALQUENCE [Suspect]
     Active Substance: ACALABRUTINIB
     Route: 048

REACTIONS (7)
  - Ileus [Unknown]
  - Malaise [Unknown]
  - Vomiting [Unknown]
  - Feeding disorder [Unknown]
  - Nausea [Unknown]
  - Feeling abnormal [Unknown]
  - Gastrointestinal sounds abnormal [Unknown]
